FAERS Safety Report 5121787-9 (Version None)
Quarter: 2006Q4

REPORT INFORMATION
  Report Type: 
  Country: None (occurrence: None)
  Receive Date: 20061006
  Receipt Date: 20060925
  Transmission Date: 20070319
  Serious: Yes (Hospitalization)
  Sender: FDA-Public Use
  Company Number: US-ROCHE-464961

PATIENT
  Age: 26 Year
  Sex: Female

DRUGS (3)
  1. TAMIFLU [Suspect]
     Indication: INFLUENZA
     Dosage: THE PATIENT TOOK FOUR DOSES OF OSELTAMIVIR.
     Route: 065
  2. AMOXICILLIN [Concomitant]
  3. BCP [Concomitant]
     Route: 048

REACTIONS (2)
  - DYSTONIA [None]
  - HEART RATE INCREASED [None]
